FAERS Safety Report 8017310-1 (Version None)
Quarter: 2012Q1

REPORT INFORMATION
  Report Type: 
  Country: None (occurrence: None)
  Receive Date: 20120102
  Receipt Date: 20111219
  Transmission Date: 20120608
  Serious: Yes (Death)
  Sender: FDA-Public Use
  Company Number: US-PFIZER INC-2011311301

PATIENT
  Age: 58 Year
  Sex: Female

DRUGS (6)
  1. DOXYLAMINE [Suspect]
     Dosage: UNK
     Route: 048
  2. ALPRAZOLAM [Suspect]
     Dosage: UNK
     Route: 048
  3. ACETAMINOPHEN AND HYDROCODONE BITARTRATE [Suspect]
     Dosage: UNK
     Route: 048
  4. FLUOXETINE [Suspect]
     Dosage: UNK
     Route: 048
  5. DEXTROMETHORPHAN HYDROBROMIDE [Suspect]
     Dosage: UNK
     Route: 048
  6. ZOLPIDEM [Suspect]
     Dosage: UNK
     Route: 048

REACTIONS (3)
  - CARDIAC ARREST [None]
  - RESPIRATORY ARREST [None]
  - COMPLETED SUICIDE [None]
